FAERS Safety Report 10786974 (Version 2)
Quarter: 2015Q3

REPORT INFORMATION
  Report Type: Spontaneous
  Country: US (occurrence: US)
  Receive Date: 20150211
  Receipt Date: 20150723
  Transmission Date: 20151125
  Serious: Yes (Other)
  Sender: FDA-Public Use
  Company Number: US-TEVA-539986USA

PATIENT
  Age: 52 Year
  Sex: Female

DRUGS (1)
  1. PARAGARD T 380A [Suspect]
     Active Substance: COPPER
     Indication: CONTRACEPTION
     Route: 015
     Dates: start: 20080403, end: 20141112

REACTIONS (3)
  - Device breakage [Not Recovered/Not Resolved]
  - Medical device complication [Unknown]
  - Embedded device [Not Recovered/Not Resolved]

NARRATIVE: CASE EVENT DATE: 20141112
